FAERS Safety Report 19678055 (Version 1)
Quarter: 2021Q3

REPORT INFORMATION
  Report Type: Report from Study
  Country: CA (occurrence: CA)
  Receive Date: 20210809
  Receipt Date: 20210809
  Transmission Date: 20211014
  Serious: Yes (Death)
  Sender: FDA-Public Use
  Company Number: CA-OTSUKA-2021_025744

PATIENT
  Age: 59 Year
  Sex: Female

DRUGS (1)
  1. ARIPIPRAZOLE. [Suspect]
     Active Substance: ARIPIPRAZOLE
     Indication: PRODUCT USED FOR UNKNOWN INDICATION
     Dosage: 400 MG Q 28 DAYS
     Route: 030
     Dates: start: 20210617

REACTIONS (1)
  - Death [Fatal]

NARRATIVE: CASE EVENT DATE: 20210731
